FAERS Safety Report 20758420 (Version 1)
Quarter: 2022Q2

REPORT INFORMATION
  Report Type: Spontaneous
  Country: US (occurrence: US)
  Receive Date: 20220427
  Receipt Date: 20220427
  Transmission Date: 20220720
  Serious: No
  Sender: FDA-Public Use
  Company Number: US-PFIZER INC-202101227384

PATIENT
  Age: 90 Year
  Sex: Female
  Weight: 50.8 kg

DRUGS (1)
  1. GABAPENTIN [Suspect]
     Active Substance: GABAPENTIN
     Indication: Nerve injury
     Dosage: 100 MG, 2X/DAY
     Dates: start: 20210915, end: 20210917

REACTIONS (5)
  - Fatigue [Unknown]
  - Snoring [Unknown]
  - Dizziness [Unknown]
  - Vision blurred [Unknown]
  - Abdominal pain upper [Unknown]

NARRATIVE: CASE EVENT DATE: 20210917
